FAERS Safety Report 24643076 (Version 1)
Quarter: 2024Q4

REPORT INFORMATION
  Report Type: Spontaneous
  Country: JP (occurrence: JP)
  Receive Date: 20241120
  Receipt Date: 20241120
  Transmission Date: 20250115
  Serious: Yes (Other)
  Sender: PFIZER
  Company Number: JP-PFIZER INC-202400304830

PATIENT
  Age: 8 Year
  Sex: Male

DRUGS (3)
  1. CLINDAMYCIN [Suspect]
     Active Substance: CLINDAMYCIN
     Indication: Lung abscess
     Dosage: UNK
  2. CYCLOPHOSPHAMIDE [Suspect]
     Active Substance: CYCLOPHOSPHAMIDE
     Indication: Lung abscess
     Dosage: UNK
  3. VANCOMYCIN [Suspect]
     Active Substance: VANCOMYCIN
     Indication: Lung abscess
     Dosage: UNK

REACTIONS (1)
  - Haemophagocytic lymphohistiocytosis [Unknown]
